FAERS Safety Report 19955486 (Version 1)
Quarter: 2021Q4

REPORT INFORMATION
  Report Type: Spontaneous
  Country: CN (occurrence: CN)
  Receive Date: 20211013
  Receipt Date: 20211013
  Transmission Date: 20220304
  Serious: Yes (Hospitalization, Disabling)
  Sender: FDA-Public Use
  Company Number: CN-BAXTER-2021BAX024712

PATIENT
  Age: 76 Year
  Sex: Male
  Weight: 54 kg

DRUGS (3)
  1. CYCLOPHOSPHAMIDE [Suspect]
     Active Substance: CYCLOPHOSPHAMIDE
     Indication: Diffuse large B-cell lymphoma
     Route: 041
     Dates: start: 20190709, end: 20190709
  2. VINDESINE SULFATE [Suspect]
     Active Substance: VINDESINE SULFATE
     Indication: Diffuse large B-cell lymphoma
     Route: 041
     Dates: start: 20190709, end: 20190709
  3. DOXORUBICIN HYDROCHLORIDE [Suspect]
     Active Substance: DOXORUBICIN HYDROCHLORIDE
     Indication: Diffuse large B-cell lymphoma
     Dosage: (SELF-PREPARED DRUG, WITH UNKNOWN APPROVAL NUMBER AND BATCH NUMBER); D1, D3; EVERY OTHER DAY (Q.O.D)
     Route: 041
     Dates: start: 20190709

REACTIONS (5)
  - Myelosuppression [Recovering/Resolving]
  - Urinary retention [Unknown]
  - Dyschezia [Unknown]
  - Abdominal distension [Unknown]
  - Abdominal pain [Unknown]

NARRATIVE: CASE EVENT DATE: 20190718
